FAERS Safety Report 5909841-2 (Version None)
Quarter: 2008Q4

REPORT INFORMATION
  Report Type: 
  Country: None (occurrence: None)
  Receive Date: 20081002
  Receipt Date: 20080919
  Transmission Date: 20090506
  Serious: Yes (Other)
  Sender: FDA-Public Use
  Company Number: 20080276

PATIENT
  Age: 84 Year
  Sex: Male

DRUGS (5)
  1. VENOFER [Suspect]
     Dosage: (4 INTRAVENOUS)
     Route: 042
  2. LANSOPRAZOLE [Concomitant]
  3. NOVOMIX(INSULIN ASPART) [Concomitant]
  4. PHENYTOIN [Concomitant]
  5. SIMVASTATIN [Concomitant]

REACTIONS (3)
  - FLUSHING [None]
  - HALLUCINATION [None]
  - RASH [None]
